FAERS Safety Report 8058767-X (Version None)
Quarter: 2012Q1

REPORT INFORMATION
  Report Type: 
  Country: None (occurrence: None)
  Receive Date: 20120120
  Receipt Date: 20120110
  Transmission Date: 20120608
  Serious: Yes (Other)
  Sender: FDA-Public Use
  Company Number: US-BAYER-2011-075236

PATIENT
  Age: 18 Year
  Sex: Female
  Weight: 56.689 kg

DRUGS (1)
  1. YASMIN [Suspect]
     Dosage: UNK
     Dates: start: 20020101, end: 20040101

REACTIONS (3)
  - MIGRAINE [None]
  - GALLBLADDER INJURY [None]
  - SYNCOPE [None]
